FAERS Safety Report 5504044-8 (Version None)
Quarter: 2007Q4

REPORT INFORMATION
  Report Type: 
  Country: None (occurrence: None)
  Receive Date: 20071101
  Receipt Date: 20071022
  Transmission Date: 20080405
  Serious: Yes (Hospitalization)
  Sender: FDA-Public Use
  Company Number: ES-BRISTOL-MYERS SQUIBB COMPANY-13950498

PATIENT
  Age: 48 Year
  Sex: Male

DRUGS (6)
  1. METFORMIN HCL [Suspect]
     Indication: DIABETES MELLITUS
     Route: 048
     Dates: start: 20070601, end: 20070808
  2. CAPOTEN TABS 12.5 MG [Suspect]
     Indication: HYPERTENSION
     Dosage: 20 TABLETS.
     Route: 048
     Dates: start: 20070601, end: 20070809
  3. FUROSEMIDE [Suspect]
     Indication: HYPERTENSION
     Route: 048
     Dates: start: 20070601, end: 20070809
  4. ALLOPURINOL [Suspect]
     Route: 048
     Dates: start: 20070101, end: 20070809
  5. SIMVASTATIN [Suspect]
     Indication: DYSLIPIDAEMIA
     Route: 048
     Dates: start: 20070101, end: 20070809
  6. OMEPRAZOLE [Suspect]
     Route: 048
     Dates: start: 20070101, end: 20070809

REACTIONS (1)
  - HEPATITIS CHOLESTATIC [None]
